FAERS Safety Report 20753955 (Version 2)
Quarter: 2023Q2

REPORT INFORMATION
  Report Type: Spontaneous
  Country: US (occurrence: None)
  Receive Date: 20220426
  Receipt Date: 20230420
  Transmission Date: 20230722
  Serious: No
  Sender: FDA-Public Use
  Company Number: US-ROCHE-2993743

PATIENT
  Sex: Female

DRUGS (15)
  1. ESBRIET [Suspect]
     Active Substance: PIRFENIDONE
     Indication: Idiopathic pulmonary fibrosis
     Route: 048
  2. ESBRIET [Suspect]
     Active Substance: PIRFENIDONE
     Route: 048
  3. ATORVASTATIN [Concomitant]
     Active Substance: ATORVASTATIN
     Route: 065
  4. CITALOPRAM [Concomitant]
     Active Substance: CITALOPRAM HYDROBROMIDE
     Route: 065
  5. DILTIAZEM [Concomitant]
     Active Substance: DILTIAZEM
     Route: 065
  6. ELIQUIS [Concomitant]
     Active Substance: APIXABAN
     Route: 065
  7. HYDROCHLOROTHIAZIDE [Concomitant]
     Active Substance: HYDROCHLOROTHIAZIDE
     Route: 065
  8. LISINOPRIL [Concomitant]
     Active Substance: LISINOPRIL
     Route: 065
  9. NOVOLOG [Concomitant]
     Active Substance: INSULIN ASPART
     Route: 048
  10. PANTOPRAZOLE [Concomitant]
     Active Substance: PANTOPRAZOLE
     Route: 048
  11. TRULICITY [Concomitant]
     Active Substance: DULAGLUTIDE
     Route: 065
  12. TRULICITY [Concomitant]
     Active Substance: DULAGLUTIDE
     Route: 065
  13. ULTRAM [Concomitant]
     Active Substance: TRAMADOL HYDROCHLORIDE
  14. ERGOCALCIFEROL [Concomitant]
     Active Substance: ERGOCALCIFEROL
  15. OFEV [Concomitant]
     Active Substance: NINTEDANIB

REACTIONS (4)
  - Abdominal pain upper [Not Recovered/Not Resolved]
  - Gastrointestinal pain [Unknown]
  - Muscle spasms [Unknown]
  - Diarrhoea [Unknown]
